FAERS Safety Report 21139416 (Version 1)
Quarter: 2022Q3

REPORT INFORMATION
  Report Type: Spontaneous
  Country: US (occurrence: US)
  Receive Date: 20220727
  Receipt Date: 20220727
  Transmission Date: 20221027
  Serious: Yes (Hospitalization)
  Sender: FDA-Public Use
  Company Number: US-LUNDBECK-DKLU3048952

PATIENT
  Age: 1 Year
  Sex: Male

DRUGS (7)
  1. SABRIL [Suspect]
     Active Substance: VIGABATRIN
     Indication: Infantile spasms
     Route: 048
     Dates: start: 20220507
  2. SABRIL [Suspect]
     Active Substance: VIGABATRIN
     Route: 048
     Dates: start: 20220521
  3. SABRIL [Suspect]
     Active Substance: VIGABATRIN
     Route: 048
     Dates: start: 20220618
  4. CLONAZEPAM [Concomitant]
     Active Substance: CLONAZEPAM
     Indication: Infantile spasms
     Dosage: TAKE 0.5 TABLETS (0.0625 MG TOTAL) BY MOUTH 1 (ONE) TIME FOR 1 DOSE
     Route: 048
     Dates: start: 20220618
  5. TOPAMAX [Concomitant]
     Active Substance: TOPIRAMATE
     Indication: Infantile spasms
     Dosage: 6 MG/ML
     Route: 048
     Dates: start: 20220618
  6. DIASTAT ACUDIAL [Concomitant]
     Active Substance: DIAZEPAM
     Indication: Seizure
     Route: 054
     Dates: start: 20220618
  7. CLARITIN [Concomitant]
     Active Substance: LORATADINE
     Indication: Hypersensitivity
     Dosage: 5 MG/ML
     Route: 048

REACTIONS (3)
  - Infantile spasms [Recovered/Resolved]
  - Rhinovirus infection [Recovered/Resolved]
  - Enterovirus infection [Recovered/Resolved]

NARRATIVE: CASE EVENT DATE: 20220601
